FAERS Safety Report 9409424 (Version 3)
Quarter: 2013Q3

REPORT INFORMATION
  Report Type: Spontaneous
  Country: PT (occurrence: None)
  Receive Date: 20130424
  Receipt Date: 20130813
  Transmission Date: 20140515
  Serious: Yes (Hospitalization, Disabling)
  Sender: FDA-Public Use
  Company Number: 2013P1002887

PATIENT
  Age: 73 Year
  Sex: Female

DRUGS (12)
  1. AMIODARONE [Suspect]
     Indication: TACHYARRHYTHMIA
     Route: 042
     Dates: start: 20130204, end: 20130204
  2. MIRTAZAPINE [Concomitant]
  3. SERTRALINE [Concomitant]
  4. RAMIPRIL [Concomitant]
  5. FUROSEMIDE [Concomitant]
  6. OMEPRAZOL [Concomitant]
  7. NEBIVOLOL [Concomitant]
  8. AMIODARONE [Concomitant]
  9. METFORMIN [Concomitant]
  10. BROMAZEPAM [Concomitant]
  11. WARFARIN [Concomitant]
  12. LEVOTHYROXIN SODIUM [Concomitant]

REACTIONS (5)
  - Infusion site phlebitis [None]
  - Incorrect route of drug administration [None]
  - Product substitution issue [None]
  - Infusion site oedema [None]
  - Infusion site necrosis [None]
